FAERS Safety Report 4333107-8 (Version None)
Quarter: 2004Q2

REPORT INFORMATION
  Report Type: 
  Country: None (occurrence: None)
  Receive Date: 20040402
  Receipt Date: 20040319
  Transmission Date: 20050107
  Serious: Yes (Hospitalization)
  Sender: FDA-Public Use
  Company Number: 2004-BP-02306NB

PATIENT
  Age: 73 Year
  Sex: Female

DRUGS (1)
  1. MEXITIL [Suspect]
     Indication: SICK SINUS SYNDROME
     Dosage: 300 MG (100 MG) PO
     Route: 048
     Dates: end: 20031202

REACTIONS (3)
  - DECREASED APPETITE [None]
  - JAUNDICE [None]
  - NAUSEA [None]
